FAERS Safety Report 26048437 (Version 1)
Quarter: 2025Q4

REPORT INFORMATION
  Report Type: Spontaneous
  Country: EU (occurrence: EU)
  Receive Date: 20251114
  Receipt Date: 20251114
  Transmission Date: 20260117
  Serious: Yes (Life-Threatening, Hospitalization)
  Sender: AMGEN
  Company Number: EU-AMGEN-DNKSP2025222442

PATIENT
  Sex: Female

DRUGS (2)
  1. ADALIMUMAB [Suspect]
     Active Substance: ADALIMUMAB
     Indication: Inflammatory bowel disease
     Dosage: UNK
     Route: 065
  2. AZATHIOPRINE [Concomitant]
     Active Substance: AZATHIOPRINE
     Indication: Inflammatory bowel disease

REACTIONS (7)
  - Septic shock [Recovered/Resolved]
  - Disseminated intravascular coagulation [Recovered/Resolved]
  - Type IV hypersensitivity reaction [Unknown]
  - Premature delivery [Unknown]
  - Caesarean section [Unknown]
  - Listeriosis [Unknown]
  - Maternal exposure during pregnancy [Unknown]
